FAERS Safety Report 9737175 (Version 2)
Quarter: 2014Q1

REPORT INFORMATION
  Report Type: Spontaneous
  Country: DE (occurrence: DE)
  Receive Date: 20131206
  Receipt Date: 20140114
  Transmission Date: 20141002
  Serious: Yes (Hospitalization)
  Sender: FDA-Public Use
  Company Number: DE-VERTEX PHARMACEUTICALS INC-2013-011658

PATIENT
  Age: 48 Year
  Sex: Male
  Weight: 71 kg

DRUGS (6)
  1. INCIVO [Suspect]
     Indication: PRODUCT USED FOR UNKNOWN INDICATION
     Dosage: 375 MG, 6 DOSES/DAY
     Route: 048
     Dates: start: 20130908, end: 20131125
  2. POLIO VACCINE [Suspect]
     Indication: POLIOMYELITIS
     Dates: start: 20131120, end: 20131120
  3. PNEUMOVAX [Suspect]
     Indication: INFECTION PROPHYLAXIS
     Dates: start: 20131115, end: 20131115
  4. DIPHTHERIA VACCINE [Suspect]
     Indication: PROPHYLAXIS
     Dates: start: 20131120, end: 20131120
  5. PEGASYS [Concomitant]
     Indication: HEPATITIS C
     Dosage: 1.8
     Route: 058
  6. RIBAVIRIN [Concomitant]
     Indication: HEPATITIS C
     Dosage: UNK
     Route: 048

REACTIONS (1)
  - Rash [Recovered/Resolved]
